FAERS Safety Report 26117248 (Version 1)
Quarter: 2025Q4

REPORT INFORMATION
  Report Type: Report from Study
  Country: EU (occurrence: EU)
  Receive Date: 20251203
  Receipt Date: 20251203
  Transmission Date: 20260118
  Serious: Yes (Other)
  Sender: ASTELLAS
  Company Number: EU-ASTELLAS-2025-AER-065392

PATIENT
  Age: 80 Year
  Sex: Male

DRUGS (8)
  1. ENFORTUMAB VEDOTIN [Suspect]
     Active Substance: ENFORTUMAB VEDOTIN
     Indication: Transitional cell carcinoma metastatic
     Route: 042
     Dates: start: 20241010
  2. PANTOPRAZOLE [Concomitant]
     Active Substance: PANTOPRAZOLE
     Indication: Prophylaxis
     Route: 065
  3. ACETAMINOPHEN [Concomitant]
     Active Substance: ACETAMINOPHEN
     Indication: Pain
     Dosage: 1 TABLET EVERY 8 HOURS
     Route: 065
     Dates: start: 20220727
  4. PREGABALIN [Concomitant]
     Active Substance: PREGABALIN
     Indication: Pain
     Route: 065
     Dates: start: 20220915
  5. PREDNISONE [Concomitant]
     Active Substance: PREDNISONE
     Indication: Premedication
     Route: 065
     Dates: start: 20211021
  6. CETIRIZINE [Concomitant]
     Active Substance: CETIRIZINE HYDROCHLORIDE
     Indication: Premedication
     Route: 065
     Dates: start: 20220210
  7. LERCANIDIPINE [Concomitant]
     Active Substance: LERCANIDIPINE
     Indication: Multimorbidity
     Route: 065
     Dates: start: 20240111
  8. FENTANYL [Concomitant]
     Active Substance: FENTANYL
     Indication: Pain
     Route: 065
     Dates: start: 20240411

REACTIONS (1)
  - Infusion related reaction [Recovered/Resolved]

NARRATIVE: CASE EVENT DATE: 20251023
